FAERS Safety Report 21022625 (Version 1)
Quarter: 2022Q2

REPORT INFORMATION
  Report Type: Spontaneous
  Country: US (occurrence: None)
  Receive Date: 20220629
  Receipt Date: 20220629
  Transmission Date: 20220721
  Serious: Yes (Hospitalization)
  Sender: FDA-Public Use
  Company Number: None

PATIENT
  Sex: Female

DRUGS (9)
  1. SPRYCEL [Suspect]
     Active Substance: DASATINIB
     Indication: Chronic myeloid leukaemia
     Dosage: OTHER FREQUENCY : TWO TIMES PER WEEK;?
     Route: 048
     Dates: start: 20190403
  2. SPRYCEL [Suspect]
     Active Substance: DASATINIB
     Indication: Philadelphia chromosome positive
  3. CELEBREX [Concomitant]
     Active Substance: CELECOXIB
  4. CLONAZEPAM [Concomitant]
     Active Substance: CLONAZEPAM
  5. GABAPENTIN [Concomitant]
     Active Substance: GABAPENTIN
  6. KEPPRA [Concomitant]
     Active Substance: LEVETIRACETAM
  7. LINZESS [Concomitant]
     Active Substance: LINACLOTIDE
  8. PROTONIX [Concomitant]
     Active Substance: PANTOPRAZOLE SODIUM
  9. SIMVASTATIN [Concomitant]
     Active Substance: SIMVASTATIN

REACTIONS (2)
  - Intentional dose omission [None]
  - Nausea [None]
